FAERS Safety Report 8058280-X (Version None)
Quarter: 2012Q1

REPORT INFORMATION
  Report Type: 
  Country: None (occurrence: None)
  Receive Date: 20120112
  Receipt Date: 20111227
  Transmission Date: 20120608
  Serious: Yes (Other)
  Sender: FDA-Public Use
  Company Number: DSA_48613_2011

PATIENT
  Age: 20 Year
  Sex: Female

DRUGS (3)
  1. METHYLDOPA [Suspect]
     Indication: PRODUCT USED FOR UNKNOWN INDICATION
     Dosage: 500 MG TID, EVERY 8 HOURS, ORAL
     Route: 048
  2. ENALAPRIL MALEATE [Suspect]
     Indication: RENOVASCULAR HYPERTENSION
     Dosage: DF ORAL
     Route: 048
  3. HYDROCHLOROTHIAZIDE [Suspect]
     Indication: RENOVASCULAR HYPERTENSION
     Dosage: DF ORAL
     Route: 048

REACTIONS (3)
  - CAESAREAN SECTION [None]
  - PREGNANCY [None]
  - MATERNAL EXPOSURE DURING PREGNANCY [None]
